FAERS Safety Report 11708163 (Version 1)
Quarter: 2015Q4

REPORT INFORMATION
  Report Type: Report from Study
  Country: US (occurrence: US)
  Receive Date: 20151107
  Receipt Date: 20151107
  Transmission Date: 20160304
  Serious: No
  Sender: FDA-Public Use
  Company Number: US-AMGEN-USASL2015113893

PATIENT
  Age: 45 Year
  Sex: Female

DRUGS (1)
  1. ENBREL [Suspect]
     Active Substance: ETANERCEPT
     Indication: RHEUMATOID ARTHRITIS
     Dosage: UNK UNK, QWK
     Route: 065
     Dates: start: 2008

REACTIONS (10)
  - Nasopharyngitis [Unknown]
  - Discomfort [Not Recovered/Not Resolved]
  - Memory impairment [Unknown]
  - Injection site swelling [Unknown]
  - Malaise [Unknown]
  - Fatigue [Unknown]
  - Injection site erythema [Unknown]
  - Pyrexia [Unknown]
  - Hypothyroidism [Not Recovered/Not Resolved]
  - Inappropriate schedule of drug administration [Unknown]

NARRATIVE: CASE EVENT DATE: 2015
